FAERS Safety Report 15985875 (Version 1)
Quarter: 2019Q1

REPORT INFORMATION
  Report Type: Spontaneous
  Country: FR (occurrence: FR)
  Receive Date: 20190220
  Receipt Date: 20190220
  Transmission Date: 20190418
  Serious: Yes (Hospitalization)
  Sender: FDA-Public Use
  Company Number: PHHY2019FR034330

PATIENT
  Age: 50 Year
  Sex: Female

DRUGS (1)
  1. HYDROXYCHLOROQUINE [Suspect]
     Active Substance: HYDROXYCHLOROQUINE
     Indication: RAYNAUD^S PHENOMENON
     Dosage: 400 MG, UNK
     Route: 065

REACTIONS (2)
  - Nail disorder [Unknown]
  - Nail pigmentation [Unknown]

NARRATIVE: CASE EVENT DATE: 2016
